FAERS Safety Report 9073601 (Version 1)
Quarter: 2013Q1

REPORT INFORMATION
  Report Type: Report from Study
  Country: DE (occurrence: DE)
  Receive Date: 20130216
  Receipt Date: 20130216
  Transmission Date: 20140127
  Serious: Yes (Other)
  Sender: FDA-Public Use
  Company Number: DE-US-EMD SERONO, INC.-7192252

PATIENT
  Sex: Female

DRUGS (3)
  1. REBIF [Suspect]
     Indication: MULTIPLE SCLEROSIS
     Route: 058
     Dates: start: 201209
  2. CORTISONE [Suspect]
     Indication: MULTIPLE SCLEROSIS RELAPSE
  3. EYE DROPS [Concomitant]
     Indication: GLAUCOMA
     Route: 047

REACTIONS (2)
  - Herpes ophthalmic [Not Recovered/Not Resolved]
  - Infection [Unknown]
